FAERS Safety Report 6650100-0 (Version None)
Quarter: 2010Q1

REPORT INFORMATION
  Report Type: 
  Country: None (occurrence: None)
  Receive Date: 20100325
  Receipt Date: 20100303
  Transmission Date: 20100710
  Serious: Yes (Death)
  Sender: FDA-Public Use
  Company Number: FR-CEPHALON-2010001643

PATIENT
  Sex: Male

DRUGS (1)
  1. TREANDA [Suspect]
     Indication: PROLYMPHOCYTIC LEUKAEMIA
     Dates: start: 20080619, end: 20080710

REACTIONS (3)
  - CACHEXIA [None]
  - PYREXIA [None]
  - SKIN HAEMORRHAGE [None]
